FAERS Safety Report 11746334 (Version 2)
Quarter: 2015Q4

REPORT INFORMATION
  Report Type: Spontaneous
  Country: ES (occurrence: ES)
  Receive Date: 20151117
  Receipt Date: 20151222
  Transmission Date: 20160304
  Serious: Yes (Other)
  Sender: FDA-Public Use
  Company Number: ES-TEVA-608787ISR

PATIENT
  Age: 4 Year
  Sex: Female

DRUGS (2)
  1. DAUNORUBICIN [Concomitant]
     Active Substance: DAUNORUBICIN
     Indication: ACUTE LYMPHOCYTIC LEUKAEMIA
     Route: 065
  2. VINCRISTINE [Suspect]
     Active Substance: VINCRISTINE
     Indication: ACUTE LYMPHOCYTIC LEUKAEMIA
     Route: 065

REACTIONS (5)
  - Asthenia [Recovered/Resolved]
  - Hypertension [Recovered/Resolved]
  - Somnolence [Unknown]
  - Fluid retention [Unknown]
  - Posterior reversible encephalopathy syndrome [Recovered/Resolved]
